FAERS Safety Report 7159140-9 (Version None)
Quarter: 2010Q4

REPORT INFORMATION
  Report Type: 
  Country: None (occurrence: None)
  Receive Date: 20101214
  Receipt Date: 20100727
  Transmission Date: 20110411
  Serious: No
  Sender: FDA-Public Use
  Company Number: US-ASTRAZENECA-2010SE35207

PATIENT
  Age: 65 Year
  Sex: Female
  Weight: 82.6 kg

DRUGS (1)
  1. CRESTOR [Suspect]
     Route: 048
     Dates: start: 20100724

REACTIONS (3)
  - FEELING ABNORMAL [None]
  - INSOMNIA [None]
  - PRURITUS [None]
